FAERS Safety Report 25515258 (Version 2)
Quarter: 2025Q3

REPORT INFORMATION
  Report Type: Spontaneous
  Country: EU (occurrence: EU)
  Receive Date: 20250704
  Receipt Date: 20250722
  Transmission Date: 20251021
  Serious: Yes (Hospitalization, Other)
  Sender: RANBAXY
  Company Number: EU-SUN PHARMACEUTICAL INDUSTRIES LTD-2025R1-514772

PATIENT
  Age: 42 Year
  Sex: Male

DRUGS (4)
  1. DOXYCYCLINE [Interacting]
     Active Substance: DOXYCYCLINE
     Indication: Plasmodium falciparum infection
     Route: 065
  2. PREDNISOLONE [Interacting]
     Active Substance: PREDNISOLONE
     Indication: Immunosuppressant drug therapy
     Route: 065
  3. TACROLIMUS [Interacting]
     Active Substance: TACROLIMUS
     Indication: Immunosuppressant drug therapy
     Route: 065
  4. CINCHONIDINE\CINCHONINE\QUINIDINE\QUININE [Interacting]
     Active Substance: CINCHONIDINE\CINCHONINE\QUINIDINE\QUININE
     Indication: Plasmodium falciparum infection
     Route: 065

REACTIONS (1)
  - Drug interaction [Unknown]
